FAERS Safety Report 6046426-4 (Version None)
Quarter: 2009Q1

REPORT INFORMATION
  Report Type: 
  Country: None (occurrence: None)
  Receive Date: 20090121
  Receipt Date: 20090121
  Transmission Date: 20090719
  Serious: Yes (Other)
  Sender: FDA-Public Use
  Company Number: None

PATIENT
  Age: 66 Year
  Sex: Female
  Weight: 86.1834 kg

DRUGS (1)
  1. VAGISIL ANTI-ITCH MAXIMUM STRENGTH COME INCORPORATED CREAM [Suspect]
     Indication: VULVOVAGINAL PRURITUS
     Dosage: FINGERTIP APPT  TO SFFECTED ARE 3 X'S A DAY

REACTIONS (6)
  - BURNING SENSATION [None]
  - CAUSTIC INJURY [None]
  - CONTUSION [None]
  - PARAESTHESIA [None]
  - SKIN DISCOLOURATION [None]
  - URTICARIA [None]
